FAERS Safety Report 8149945-X (Version None)
Quarter: 2012Q1

REPORT INFORMATION
  Report Type: 
  Country: None (occurrence: None)
  Receive Date: 20120218
  Receipt Date: 20120110
  Transmission Date: 20120608
  Serious: No
  Sender: FDA-Public Use
  Company Number: US-ALLERGAN-1116621US

PATIENT
  Age: 47 Year
  Sex: Female

DRUGS (2)
  1. BOTOX COSMETIC [Suspect]
     Dosage: 21 UNK, UNK
     Route: 030
     Dates: start: 20111117, end: 20111117
  2. BOTOX COSMETIC [Suspect]
     Indication: SKIN WRINKLING
     Dosage: 20 UNITS, SINGLE
     Route: 030
     Dates: start: 20111212, end: 20111212

REACTIONS (7)
  - INFLUENZA LIKE ILLNESS [None]
  - NECK PAIN [None]
  - ASTHENIA [None]
  - PARAESTHESIA [None]
  - HEADACHE [None]
  - DIZZINESS [None]
  - WRONG TECHNIQUE IN DRUG USAGE PROCESS [None]
